FAERS Safety Report 11778367 (Version 1)
Quarter: 2015Q4

REPORT INFORMATION
  Report Type: Spontaneous
  Country: US (occurrence: US)
  Receive Date: 20151125
  Receipt Date: 20151125
  Transmission Date: 20160304
  Serious: Yes (Other)
  Sender: FDA-Public Use
  Company Number: US-TEVA-611271USA

PATIENT
  Age: 68 Year
  Sex: Female
  Weight: 60.84 kg

DRUGS (2)
  1. LABETALOL [Suspect]
     Active Substance: LABETALOL\LABETALOL HYDROCHLORIDE
     Indication: HYPERTENSION
     Dosage: HALF A TABLET TWICE A DAY
     Route: 065
  2. FLECTOR [Suspect]
     Active Substance: DICLOFENAC EPOLAMINE
     Indication: PAIN
     Dosage: PATCH; EVERY OTHER DAY

REACTIONS (3)
  - Malignant melanoma [Unknown]
  - Hypotension [Unknown]
  - Blood pressure increased [Unknown]
